FAERS Safety Report 8244612-6 (Version None)
Quarter: 2012Q1

REPORT INFORMATION
  Report Type: 
  Country: None (occurrence: None)
  Receive Date: 20120329
  Receipt Date: 20120327
  Transmission Date: 20120608
  Serious: Yes (Death, Other)
  Sender: FDA-Public Use
  Company Number: US-PFIZER INC-2012034617

PATIENT
  Sex: Male

DRUGS (6)
  1. LIPITOR [Suspect]
     Dosage: 10 MG, UNK
  2. PROTONIX [Suspect]
     Indication: GASTROOESOPHAGEAL REFLUX DISEASE
     Dosage: 40 MG, DAILY
     Route: 048
  3. VIAGRA [Suspect]
     Dosage: 100 MG, UNK
  4. PREDNISONE [Concomitant]
     Dosage: UNK
  5. NORVASC [Suspect]
     Dosage: 5 MG, UNK
  6. FOSAMAX [Concomitant]
     Indication: OSTEOPOROSIS
     Dosage: UNK

REACTIONS (2)
  - DEATH [None]
  - FEMUR FRACTURE [None]
